FAERS Safety Report 11804435 (Version 1)
Quarter: 2015Q4

REPORT INFORMATION
  Report Type: Spontaneous
  Country: US (occurrence: US)
  Receive Date: 20151204
  Receipt Date: 20151204
  Transmission Date: 20160305
  Serious: No
  Sender: FDA-Public Use
  Company Number: US-ELI_LILLY_AND_COMPANY-US201511009635

PATIENT
  Age: 73 Year
  Sex: Female

DRUGS (3)
  1. GLYBURIDE. [Concomitant]
     Active Substance: GLYBURIDE
  2. HUMALOG MIX75/25 [Suspect]
     Active Substance: INSULIN LISPRO
     Indication: DIABETES MELLITUS
     Dosage: 20 U, EACH EVENING
     Route: 065
     Dates: start: 201506
  3. LEVEMIR [Concomitant]
     Active Substance: INSULIN DETEMIR

REACTIONS (2)
  - Blood glucose increased [Unknown]
  - Drug dose omission [Unknown]

NARRATIVE: CASE EVENT DATE: 20151125
